FAERS Safety Report 21323936 (Version 1)
Quarter: 2022Q3

REPORT INFORMATION
  Report Type: Spontaneous
  Country: US (occurrence: US)
  Receive Date: 20220912
  Receipt Date: 20220912
  Transmission Date: 20221026
  Serious: No
  Sender: FDA-Public Use
  Company Number: US-BRISTOL-MYERS SQUIBB COMPANY-2022-104528

PATIENT
  Age: 85 Year
  Sex: Female
  Weight: 63.50 kg

DRUGS (1)
  1. REVLIMID [Suspect]
     Active Substance: LENALIDOMIDE
     Indication: Plasma cell myeloma
     Dosage: FREQUENCY: DAY 1-21 Q 28 DAY
     Route: 048
     Dates: start: 20201001

REACTIONS (3)
  - Urinary tract infection [Unknown]
  - Blood test abnormal [Unknown]
  - Monoclonal immunoglobulin present [Unknown]
